FAERS Safety Report 5459522-7 (Version None)
Quarter: 2007Q3

REPORT INFORMATION
  Report Type: 
  Country: None (occurrence: None)
  Receive Date: 20070919
  Receipt Date: 20070914
  Transmission Date: 20080115
  Serious: Yes (Other)
  Sender: FDA-Public Use
  Company Number: D0054565A

PATIENT
  Sex: Female

DRUGS (1)
  1. MYLERAN [Suspect]
     Route: 048

REACTIONS (1)
  - LEUKOCYTOSIS [None]
